FAERS Safety Report 4286865-5 (Version None)
Quarter: 2004Q1

REPORT INFORMATION
  Report Type: 
  Country: None (occurrence: None)
  Receive Date: 20040128
  Receipt Date: 20040112
  Transmission Date: 20041129
  Serious: Yes (Hospitalization, Other)
  Sender: FDA-Public Use
  Company Number: 200310436BBE

PATIENT
  Sex: Female

DRUGS (2)
  1. GAMIMUNE N 10% [Suspect]
     Indication: DRUG RESISTANCE
     Dosage: 600 MG/KG, INTRAVENOUS
     Route: 042
  2. GAMIMUNE N 10% [Suspect]
     Indication: PNEUMONIA
     Dosage: 600 MG/KG, INTRAVENOUS
     Route: 042

REACTIONS (7)
  - CAROTID ARTERY STENOSIS [None]
  - CAROTID ARTERY THROMBOSIS [None]
  - CEREBRAL INFARCTION [None]
  - CEREBROVASCULAR ACCIDENT [None]
  - DYSARTHRIA [None]
  - HEMIPARESIS [None]
  - HYPOAESTHESIA [None]
